FAERS Safety Report 25490424 (Version 1)
Quarter: 2025Q2

REPORT INFORMATION
  Report Type: Report from Study
  Country: US (occurrence: US)
  Receive Date: 20250628
  Receipt Date: 20250628
  Transmission Date: 20250717
  Serious: Yes (Hospitalization, Other)
  Sender: SERVIER
  Company Number: US-SERVIER-S25008444

PATIENT

DRUGS (1)
  1. TIBSOVO [Suspect]
     Active Substance: IVOSIDENIB
     Indication: Brain neoplasm malignant
     Dosage: 500 MG, QD
     Route: 048
     Dates: start: 20230601

REACTIONS (3)
  - Surgery [Unknown]
  - Seizure [Unknown]
  - Product dose omission in error [Recovered/Resolved]

NARRATIVE: CASE EVENT DATE: 20250601
